FAERS Safety Report 23784007 (Version 2)
Quarter: 2024Q3

REPORT INFORMATION
  Report Type: Spontaneous
  Country: US (occurrence: US)
  Receive Date: 20240425
  Receipt Date: 20240807
  Transmission Date: 20241017
  Serious: No
  Sender: SANOFI AVENTIS
  Company Number: US-SA-SAC20240418001235

PATIENT
  Age: 62 Year
  Sex: Female

DRUGS (1)
  1. DUPIXENT [Suspect]
     Active Substance: DUPILUMAB
     Indication: Asthma
     Dosage: 300 MG, QOW
     Route: 058

REACTIONS (8)
  - Injection site rash [Unknown]
  - Injection site pruritus [Unknown]
  - Cough [Unknown]
  - Injection site irritation [Unknown]
  - Dyspnoea [Unknown]
  - Eyelid ptosis [Unknown]
  - Stress [Unknown]
  - Injection site urticaria [Unknown]

NARRATIVE: CASE EVENT DATE: 20240701
